FAERS Safety Report 18829442 (Version 1)
Quarter: 2021Q1

REPORT INFORMATION
  Report Type: Spontaneous
  Country: US (occurrence: US)
  Receive Date: 20210201
  Receipt Date: 20210201
  Transmission Date: 20210419
  Serious: No
  Sender: FDA-Public Use
  Company Number: US-ABBVIE-20K-163-3574466-00

PATIENT
  Age: 65 Year
  Sex: Male

DRUGS (6)
  1. ALBUTEROL. [Concomitant]
     Active Substance: ALBUTEROL
     Indication: ASTHMA
  2. LEVOTHYROXINE. [Concomitant]
     Active Substance: LEVOTHYROXINE
     Indication: HYPOTHYROIDISM
  3. HUMIRA [Suspect]
     Active Substance: ADALIMUMAB
     Indication: PSORIATIC ARTHROPATHY
     Route: 058
     Dates: start: 202007
  4. LIOTHYRONINE [Concomitant]
     Active Substance: LIOTHYRONINE
     Indication: THYROID DISORDER
  5. TAMSULOSIN [Concomitant]
     Active Substance: TAMSULOSIN
     Indication: PROSTATOMEGALY
  6. TESTOSTERONE. [Concomitant]
     Active Substance: TESTOSTERONE
     Indication: ANDROGEN REPLACEMENT THERAPY

REACTIONS (4)
  - Musculoskeletal disorder [Not Recovered/Not Resolved]
  - Wrong technique in product usage process [Recovered/Resolved]
  - Incorrect dose administered [Recovered/Resolved]
  - Device issue [Recovered/Resolved]

NARRATIVE: CASE EVENT DATE: 202001
